FAERS Safety Report 16664535 (Version 1)
Quarter: 2019Q3

REPORT INFORMATION
  Report Type: Report from Study
  Country: US (occurrence: US)
  Receive Date: 20190802
  Receipt Date: 20190802
  Transmission Date: 20191004
  Serious: No
  Sender: FDA-Public Use
  Company Number: PHEH2019US031778

PATIENT
  Sex: Female

DRUGS (1)
  1. MAYZENT [Suspect]
     Active Substance: SIPONIMOD
     Indication: MULTIPLE SCLEROSIS
     Dosage: 2 MG, QD
     Route: 048

REACTIONS (7)
  - Somnolence [Unknown]
  - Cardiac disorder [Unknown]
  - Asthenia [Unknown]
  - Fatigue [Unknown]
  - Balance disorder [Unknown]
  - Nausea [Unknown]
  - Feeling abnormal [Unknown]
